FAERS Safety Report 21779130 (Version 1)
Quarter: 2022Q4

REPORT INFORMATION
  Report Type: Spontaneous
  Country: RU (occurrence: RU)
  Receive Date: 20221226
  Receipt Date: 20221226
  Transmission Date: 20230113
  Serious: Yes (Life-Threatening)
  Sender: FDA-Public Use
  Company Number: None

PATIENT
  Age: 88 Year
  Sex: Male
  Weight: 70 kg

DRUGS (1)
  1. ULTRAVIST [Suspect]
     Active Substance: IOPROMIDE
     Indication: Diagnostic procedure
     Dosage: 37 G, ONCE
     Route: 041
     Dates: start: 20221209, end: 20221209

REACTIONS (4)
  - Anaphylactic reaction [Recovering/Resolving]
  - Blood pressure decreased [Recovering/Resolving]
  - Confusional state [Recovering/Resolving]
  - Choking sensation [Recovering/Resolving]

NARRATIVE: CASE EVENT DATE: 20221209
